FAERS Safety Report 7496765-5 (Version None)
Quarter: 2011Q2

REPORT INFORMATION
  Report Type: 
  Country: None (occurrence: None)
  Receive Date: 20110523
  Receipt Date: 20110506
  Transmission Date: 20111010
  Serious: Yes (Other)
  Sender: FDA-Public Use
  Company Number: B0718247A

PATIENT
  Sex: Male

DRUGS (1)
  1. PAROXETINE HCL [Suspect]
     Route: 065

REACTIONS (5)
  - HEADACHE [None]
  - DRUG INEFFECTIVE [None]
  - CONFUSIONAL STATE [None]
  - AGGRESSION [None]
  - NAUSEA [None]
